FAERS Safety Report 19479513 (Version 2)
Quarter: 2021Q3

REPORT INFORMATION
  Report Type: Spontaneous
  Country: DK (occurrence: DK)
  Receive Date: 20210630
  Receipt Date: 20210802
  Transmission Date: 20211014
  Serious: Yes (Other)
  Sender: FDA-Public Use
  Company Number: DK-PFIZER INC-2021554620

PATIENT
  Sex: Female

DRUGS (2)
  1. NEXIUM [Suspect]
     Active Substance: ESOMEPRAZOLE MAGNESIUM
     Dosage: UNK
  2. CYTOTEC [Suspect]
     Active Substance: MISOPROSTOL
     Dosage: UNK UNK, DAILY

REACTIONS (2)
  - Drug dependence [Unknown]
  - Contraindicated product administered [Unknown]
